FAERS Safety Report 18193136 (Version 3)
Quarter: 2020Q3

REPORT INFORMATION
  Report Type: Spontaneous
  Country: KZ (occurrence: KZ)
  Receive Date: 20200825
  Receipt Date: 20200923
  Transmission Date: 20201103
  Serious: Yes (Hospitalization)
  Sender: FDA-Public Use
  Company Number: KZ-ELI_LILLY_AND_COMPANY-KZ202008006131

PATIENT
  Age: 50 Year
  Sex: Female

DRUGS (2)
  1. FORXIGA [Concomitant]
     Active Substance: DAPAGLIFLOZIN
     Indication: BLOOD GLUCOSE INCREASED
  2. TRULICITY [Suspect]
     Active Substance: DULAGLUTIDE
     Indication: TYPE 2 DIABETES MELLITUS
     Dosage: 0.75 MG, UNKNOWN
     Route: 065
     Dates: start: 20200620

REACTIONS (12)
  - Hepatomegaly [Recovering/Resolving]
  - Oedematous kidney [Recovering/Resolving]
  - Coma [Recovered/Resolved]
  - Loss of consciousness [Recovered/Resolved]
  - Blood creatinine increased [Recovering/Resolving]
  - Pneumonia [Recovering/Resolving]
  - C-reactive protein increased [Recovering/Resolving]
  - COVID-19 [Recovering/Resolving]
  - Serum ferritin increased [Recovering/Resolving]
  - Procalcitonin [Recovering/Resolving]
  - Anaemia [Recovering/Resolving]
  - Enterobacter infection [Recovering/Resolving]

NARRATIVE: CASE EVENT DATE: 20200621
